FAERS Safety Report 4607865-9 (Version None)
Quarter: 2005Q1

REPORT INFORMATION
  Report Type: 
  Country: None (occurrence: None)
  Receive Date: 20050310
  Receipt Date: 20050225
  Transmission Date: 20050727
  Serious: Yes (Life-Threatening)
  Sender: FDA-Public Use
  Company Number: 2005038543

PATIENT
  Age: 4 Year
  Sex: Male

DRUGS (3)
  1. CEFPODOXIME PROXETIL [Suspect]
     Indication: PYREXIA
     Dosage: 56 MG, ORAL
     Route: 048
     Dates: start: 20050122, end: 20050128
  2. BETAMETHASONE [Suspect]
     Indication: PYREXIA
     Dosage: 0.4 MG, ORAL
     Route: 048
     Dates: start: 20050122, end: 20050128
  3. IBUPROFEN [Suspect]
     Indication: PYREXIA
     Dosage: 420 MG, ORAL
     Route: 048
     Dates: start: 20050120, end: 20050128

REACTIONS (4)
  - INFECTION [None]
  - PERICARDITIS [None]
  - PLEURISY [None]
  - PNEUMOCOCCAL INFECTION [None]
